FAERS Safety Report 13264279 (Version 1)
Quarter: 2017Q1

REPORT INFORMATION
  Report Type: Spontaneous
  Country: PE (occurrence: PE)
  Receive Date: 20170223
  Receipt Date: 20170223
  Transmission Date: 20170428
  Serious: Yes (Other)
  Sender: FDA-Public Use
  Company Number: PE-PFIZER INC-2017078263

PATIENT
  Age: 58 Year
  Sex: Female

DRUGS (1)
  1. XALATAN [Suspect]
     Active Substance: LATANOPROST
     Dosage: 1 GTT (ON THE LEFT EYE), DAILY
     Route: 047

REACTIONS (2)
  - Intraocular pressure increased [Unknown]
  - Haemorrhoids [Unknown]
